FAERS Safety Report 6148928-9 (Version None)
Quarter: 2009Q2

REPORT INFORMATION
  Report Type: 
  Country: None (occurrence: None)
  Receive Date: 20090407
  Receipt Date: 20090325
  Transmission Date: 20091009
  Serious: Yes (Other)
  Sender: FDA-Public Use
  Company Number: POMP-1000513

PATIENT
  Age: 9 Year
  Sex: Male
  Weight: 32.9 kg

DRUGS (3)
  1. MYOZYME [Suspect]
     Indication: GLYCOGEN STORAGE DISEASE TYPE II
     Dosage: 20 MG/KG, Q2W, INTRAVENOUS; 5 MG/KG, 2X/W, INTRAVENOUS; 5 MG/KG, 2/X, INTRAVENOUS; 10 MG/KG, QW, UNK
     Route: 042
     Dates: start: 19990927, end: 20020501
  2. MYOZYME [Suspect]
     Indication: GLYCOGEN STORAGE DISEASE TYPE II
     Dosage: 20 MG/KG, Q2W, INTRAVENOUS; 5 MG/KG, 2X/W, INTRAVENOUS; 5 MG/KG, 2/X, INTRAVENOUS; 10 MG/KG, QW, UNK
     Route: 042
     Dates: start: 20020516, end: 20050101
  3. MYOZYME [Suspect]
     Indication: GLYCOGEN STORAGE DISEASE TYPE II
     Dosage: 20 MG/KG, Q2W, INTRAVENOUS; 5 MG/KG, 2X/W, INTRAVENOUS; 5 MG/KG, 2/X, INTRAVENOUS; 10 MG/KG, QW, UNK
     Route: 042
     Dates: start: 20050101

REACTIONS (5)
  - DISEASE PROGRESSION [None]
  - FLUSHING [None]
  - MUSCULAR WEAKNESS [None]
  - PERONEAL NERVE PALSY [None]
  - RESTRICTIVE PULMONARY DISEASE [None]
